FAERS Safety Report 8603472-1 (Version None)
Quarter: 2012Q3

REPORT INFORMATION
  Report Type: 
  Country: None (occurrence: None)
  Receive Date: 20120817
  Receipt Date: 20120813
  Transmission Date: 20120928
  Serious: Yes (Other)
  Sender: FDA-Public Use
  Company Number: US-PFIZER INC-2012197644

PATIENT
  Age: 65 Year
  Sex: Female

DRUGS (1)
  1. PREMARIN [Suspect]
     Indication: BONE DISORDER
     Dosage: UNK

REACTIONS (7)
  - VAGINAL DISORDER [None]
  - ENDOMETRIAL DISORDER [None]
  - HAEMORRHAGE [None]
  - NEOPLASM MALIGNANT [None]
  - ENDOMETRIAL HYPERTROPHY [None]
  - EMOTIONAL DISORDER [None]
  - BLOOD COUNT ABNORMAL [None]
